FAERS Safety Report 12865683 (Version 1)
Quarter: 2016Q4

REPORT INFORMATION
  Report Type: Spontaneous
  Country: BR (occurrence: BR)
  Receive Date: 20161020
  Receipt Date: 20161020
  Transmission Date: 20170207
  Serious: Yes (Other)
  Sender: FDA-Public Use
  Company Number: BR-PFIZER INC-2016486932

PATIENT
  Age: 74 Year
  Sex: Female

DRUGS (7)
  1. AMYTRIL [Concomitant]
     Active Substance: AMITRIPTYLINE HYDROCHLORIDE
     Dosage: 2 TABLETS AT NIGHT
     Route: 048
  2. INDAPEN SR [Concomitant]
     Active Substance: INDAPAMIDE
     Dosage: 1 TABLET DAILY
     Route: 048
  3. LABIRIN [Concomitant]
     Active Substance: BETAHISTINE
     Indication: LABYRINTHITIS
     Dosage: 2 TABLETS PER DAY
     Route: 048
  4. LYRICA [Suspect]
     Active Substance: PREGABALIN
     Indication: TRIGEMINAL NEURALGIA
     Dosage: UNK
     Route: 048
     Dates: start: 2012
  5. PURAN [Concomitant]
     Active Substance: LEVOTHYROXINE SODIUM
     Dosage: 1 TABLET AND A HALF, UNK
     Route: 048
  6. GLIFAGE XR [Concomitant]
     Active Substance: METFORMIN HYDROCHLORIDE
     Dosage: 1 TABLET PER DAY
     Route: 048
  7. SERTRALINE HYDROCHLORIDE. [Concomitant]
     Active Substance: SERTRALINE HYDROCHLORIDE
     Dosage: 1 TABLET DAY

REACTIONS (5)
  - Fall [Unknown]
  - Spinal fracture [Unknown]
  - Head injury [Unknown]
  - Spinal flattening [Unknown]
  - Migraine [Unknown]

NARRATIVE: CASE EVENT DATE: 2015
